FAERS Safety Report 8091408-4 (Version None)
Quarter: 2012Q1

REPORT INFORMATION
  Report Type: 
  Country: None (occurrence: None)
  Receive Date: 20120129
  Receipt Date: 20111215
  Transmission Date: 20120608
  Serious: Yes (Hospitalization, Other)
  Sender: FDA-Public Use
  Company Number: US-ABBOTT-10P-163-0688887-00

PATIENT
  Sex: Male
  Weight: 85.806 kg

DRUGS (11)
  1. CADUET [Concomitant]
     Indication: BLOOD CHOLESTEROL
  2. UNKNOWN BLADDER MEDICATION [Concomitant]
     Indication: BENIGN PROSTATIC HYPERPLASIA
  3. DIOVAN HCT [Concomitant]
     Indication: HYPERTENSION
     Dosage: 320/12.5MG EVERYDAY
  4. TEKTURNA [Concomitant]
     Indication: BLOOD PRESSURE
  5. AVODART [Concomitant]
     Indication: RENAL DISORDER
  6. CADUET [Concomitant]
     Indication: HYPERTENSION
  7. METHOTREXATE [Suspect]
     Indication: RHEUMATOID ARTHRITIS
     Dates: start: 20080101, end: 20101201
  8. GABAPENTIN [Concomitant]
     Indication: BACK PAIN
  9. HUMIRA [Suspect]
     Indication: RHEUMATOID ARTHRITIS
     Route: 058
     Dates: start: 20060101
  10. ADVAIR DISKUS 100/50 [Concomitant]
     Indication: PRODUCT USED FOR UNKNOWN INDICATION
  11. TRICOR [Concomitant]
     Indication: BLOOD TRIGLYCERIDES INCREASED

REACTIONS (7)
  - RASH PAPULAR [None]
  - LUNG INFECTION [None]
  - DYSPNOEA [None]
  - RASH PRURITIC [None]
  - URTICARIA [None]
  - WEIGHT DECREASED [None]
  - ROTATOR CUFF REPAIR [None]
